FAERS Safety Report 18231185 (Version 4)
Quarter: 2022Q3

REPORT INFORMATION
  Report Type: Report from Study
  Country: US (occurrence: US)
  Receive Date: 20200904
  Receipt Date: 20220714
  Transmission Date: 20221027
  Serious: Yes (Death, Hospitalization, Other)
  Sender: FDA-Public Use
  Company Number: US-ACADIA PHARMACEUTICALS INC.-ACA-2020-PIM-002662

PATIENT
  Sex: Male

DRUGS (11)
  1. NUPLAZID [Suspect]
     Active Substance: PIMAVANSERIN TARTRATE
     Indication: Parkinson^s disease psychosis
     Dosage: 34 MILLIGRAM, QD
     Route: 048
     Dates: start: 202008
  2. NUPLAZID [Suspect]
     Active Substance: PIMAVANSERIN TARTRATE
     Indication: Hallucination
     Dosage: 34 MILLIGRAM, QD
     Route: 048
     Dates: start: 20200815
  3. NUPLAZID [Suspect]
     Active Substance: PIMAVANSERIN TARTRATE
     Indication: Delusion
     Dosage: 34 MILLIGRAM, QD
     Route: 048
     Dates: start: 20210127, end: 20220603
  4. SINEMET [Concomitant]
     Active Substance: CARBIDOPA\LEVODOPA
  5. ALLOPURINOL [Concomitant]
     Active Substance: ALLOPURINOL
  6. LOSARTAN [Concomitant]
     Active Substance: LOSARTAN
  7. MEMANTINE [Concomitant]
     Active Substance: MEMANTINE
  8. METOPROLOL [Concomitant]
     Active Substance: METOPROLOL
  9. PRAMIPEXOLE [Concomitant]
     Active Substance: PRAMIPEXOLE
  10. CLONAZEPAM [Concomitant]
     Active Substance: CLONAZEPAM
  11. KYNMOBI [Concomitant]
     Active Substance: APOMORPHINE HYDROCHLORIDE

REACTIONS (16)
  - Cerebral haemorrhage [Fatal]
  - Transient ischaemic attack [Fatal]
  - Altered state of consciousness [Fatal]
  - Aphasia [Fatal]
  - Confusional state [Fatal]
  - Fall [Recovered/Resolved]
  - Amnesia [Not Recovered/Not Resolved]
  - Cognitive disorder [Not Recovered/Not Resolved]
  - Illusion [Unknown]
  - Disorientation [Unknown]
  - Thinking abnormal [Unknown]
  - Eating disorder [Recovered/Resolved]
  - Derealisation [Recovering/Resolving]
  - Confusional state [Not Recovered/Not Resolved]
  - Hallucination [Not Recovered/Not Resolved]
  - Hallucination, visual [Recovering/Resolving]

NARRATIVE: CASE EVENT DATE: 20200101
